FAERS Safety Report 8615915-8 (Version None)
Quarter: 2012Q3

REPORT INFORMATION
  Report Type: 
  Country: None (occurrence: None)
  Receive Date: 20120823
  Receipt Date: 20120816
  Transmission Date: 20120928
  Serious: Yes (Disabling, Other)
  Sender: FDA-Public Use
  Company Number: US-GLAXOSMITHKLINE-A0979507A

PATIENT
  Age: 65 Year
  Sex: Female
  Weight: 65.9 kg

DRUGS (3)
  1. ALLERGY INJECTIONS [Concomitant]
  2. SINGULAIR [Concomitant]
  3. FLUTICASONE PROPIONATE [Suspect]
     Indication: ASTHMA
     Dosage: 1PUFF TWICE PER DAY
     Route: 055
     Dates: start: 20091001

REACTIONS (5)
  - CONTUSION [None]
  - WOUND [None]
  - PAIN OF SKIN [None]
  - SKIN ATROPHY [None]
  - HAEMATOMA [None]
